FAERS Safety Report 10249464 (Version 1)
Quarter: 2014Q2

REPORT INFORMATION
  Report Type: Spontaneous
  Country: US (occurrence: None)
  Receive Date: 20140619
  Receipt Date: 20140619
  Transmission Date: 20141212
  Serious: Yes (Other)
  Sender: FDA-Public Use
  Company Number: None

PATIENT
  Age: 59 Year
  Sex: Male

DRUGS (1)
  1. AFINITOR [Suspect]
     Indication: NEUROENDOCRINE CARCINOMA
     Route: 048
     Dates: start: 20130626

REACTIONS (3)
  - Rash pruritic [None]
  - Photosensitivity reaction [None]
  - Onychoclasis [None]
